FAERS Safety Report 13165750 (Version 1)
Quarter: 2017Q1

REPORT INFORMATION
  Report Type: Spontaneous
  Country: US (occurrence: US)
  Receive Date: 20170126
  Receipt Date: 20170126
  Transmission Date: 20170428
  Serious: No
  Sender: FDA-Public Use
  Company Number: None

PATIENT
  Age: 72 Year
  Sex: Male
  Weight: 76.8 kg

DRUGS (2)
  1. DABIGATRAN [Suspect]
     Active Substance: DABIGATRAN
     Indication: ATRIAL FIBRILLATION
     Route: 048
     Dates: start: 20130701, end: 20130719
  2. DABIGATRAN [Suspect]
     Active Substance: DABIGATRAN
     Indication: MITRAL VALVE REPAIR
     Route: 048
     Dates: start: 20130701, end: 20130719

REACTIONS (2)
  - Diarrhoea [None]
  - Haemorrhage [None]

NARRATIVE: CASE EVENT DATE: 20130819
